FAERS Safety Report 12992934 (Version 1)
Quarter: 2016Q4

REPORT INFORMATION
  Report Type: Spontaneous
  Country: IL (occurrence: IL)
  Receive Date: 20161202
  Receipt Date: 20161202
  Transmission Date: 20170207
  Serious: Yes (Hospitalization)
  Sender: FDA-Public Use
  Company Number: IL-BIOVITRUM-2016IL0839

PATIENT
  Age: 7 Year
  Sex: Male
  Weight: 29.2 kg

DRUGS (1)
  1. ORFADIN [Suspect]
     Active Substance: NITISINONE
     Indication: TYROSINAEMIA
     Dosage: DOSE 1,02 MG/KG
     Dates: start: 20070527

REACTIONS (2)
  - Liver transplant [Recovering/Resolving]
  - Hepatocellular carcinoma [Recovering/Resolving]

NARRATIVE: CASE EVENT DATE: 20140106
